FAERS Safety Report 6883045-1 (Version None)
Quarter: 2010Q3

REPORT INFORMATION
  Report Type: 
  Country: None (occurrence: None)
  Receive Date: 20100708
  Receipt Date: 20100125
  Transmission Date: 20110219
  Serious: Yes (Other)
  Sender: FDA-Public Use
  Company Number: 2010008515

PATIENT
  Age: 23 Year
  Sex: Male
  Weight: 104 kg

DRUGS (2)
  1. CHANTIX [Suspect]
     Indication: SMOKING CESSATION THERAPY
     Dosage: 0.5 MG, 1X/DAY : 1 MG, 2X/DAY, ORAL
     Route: 048
     Dates: start: 20100113, end: 20100116
  2. CHANTIX [Suspect]
     Indication: SMOKING CESSATION THERAPY
     Dosage: 0.5 MG, 1X/DAY : 1 MG, 2X/DAY, ORAL
     Route: 048
     Dates: start: 20100106

REACTIONS (5)
  - AGGRESSION [None]
  - ANGER [None]
  - DECREASED INTEREST [None]
  - DEPRESSION [None]
  - PERSONALITY CHANGE [None]
